FAERS Safety Report 15838386 (Version 2)
Quarter: 2020Q1

REPORT INFORMATION
  Report Type: Report from Study
  Country: US (occurrence: US)
  Receive Date: 20190117
  Receipt Date: 20200103
  Transmission Date: 20200409
  Serious: Yes (Hospitalization, Other)
  Sender: FDA-Public Use
  Company Number: US-PFIZER INC-2019018275

PATIENT
  Age: 71 Year
  Sex: Female

DRUGS (36)
  1. IRINOTECAN HCL [Suspect]
     Active Substance: IRINOTECAN HYDROCHLORIDE
     Dosage: DAY 1 OF EACH 14-DAY CYCLE (150 MG/M2, 1 IN 2 WK)
     Route: 042
     Dates: start: 20180926, end: 20180926
  2. IRINOTECAN HCL [Suspect]
     Active Substance: IRINOTECAN HYDROCHLORIDE
     Dosage: DAY 1 OF EACH 14-DAY CYCLE (120 MG/M2, 1 IN 2 WK)
     Route: 042
     Dates: start: 20181017, end: 20181219
  3. 5-FLUOROURACIL [FLUOROURACIL] [Suspect]
     Active Substance: FLUOROURACIL
     Dosage: 1600 MG/M2, 1 IN 2 WK
     Route: 042
     Dates: start: 20190109
  4. ONDANSETRON [Concomitant]
     Active Substance: ONDANSETRON
     Indication: PROPHYLAXIS OF NAUSEA AND VOMITING
  5. BEVACIZUMAB. [Suspect]
     Active Substance: BEVACIZUMAB
     Indication: COLORECTAL CANCER METASTATIC
     Dosage: DAY 1 OF EACH 14-DAY CYCLE (5 MG/KG, 1 IN 2 WK)
     Route: 042
     Dates: start: 20180905, end: 20181219
  6. ELIQUIS [Concomitant]
     Active Substance: APIXABAN
     Indication: THROMBOSIS PROPHYLAXIS
     Dosage: UNK
     Route: 048
  7. OXYCODONE HYDROCHLORIDE. [Concomitant]
     Active Substance: OXYCODONE HYDROCHLORIDE
     Indication: OSTEOARTHRITIS
     Dosage: 5 MG, AS REQUIRED
     Route: 048
     Dates: start: 20180725
  8. IRINOTECAN HCL [Suspect]
     Active Substance: IRINOTECAN HYDROCHLORIDE
     Indication: COLORECTAL CANCER METASTATIC
     Dosage: DAY 1 OF EACH 14-DAY CYCLE (180 MG/M2, 1 IN 2 WK)
     Route: 040
     Dates: start: 20180905, end: 20180905
  9. LEUCOVORIN [FOLINIC ACID] [Suspect]
     Active Substance: LEUCOVORIN
     Dosage: DAY 1 OF EACH 14-DAY CYCLE (400 MG/M2, 1 IN 2 WK)
     Route: 042
     Dates: start: 20190109
  10. LOSARTAN. [Concomitant]
     Active Substance: LOSARTAN
     Indication: HYPERTENSION
     Dosage: 50 MG, 2 IN 1 D
     Route: 048
     Dates: start: 20180130
  11. VITAMIN D (ERGOCALCIFEROL) [Concomitant]
     Active Substance: ERGOCALCIFEROL
     Indication: SUPPLEMENTATION THERAPY
     Dosage: 1000 UNIT,  1 IN 1 D
     Route: 048
     Dates: start: 20160509
  12. TYLENOL 8HR ARTHRITIS(PARACETAMOL) [Concomitant]
     Indication: OSTEOARTHRITIS
     Dosage: 1300 MG, 1 IN 1 D
     Route: 048
     Dates: start: 20180726
  13. 5-FLUOROURACIL [FLUOROURACIL] [Suspect]
     Active Substance: FLUOROURACIL
     Indication: COLORECTAL CANCER METASTATIC
     Dosage: 400 MG/M2, UNK
     Route: 040
     Dates: start: 20180905, end: 20180905
  14. ELIQUIS [Concomitant]
     Active Substance: APIXABAN
     Indication: FIBRIN D DIMER INCREASED
  15. CYANOCOBALAMIN. [Concomitant]
     Active Substance: CYANOCOBALAMIN
     Indication: VITAMIN B12 DEFICIENCY
     Dosage: 1000 MCG, AS REQUIRED
     Route: 048
     Dates: start: 20151108
  16. DULOXETINE DR [Concomitant]
     Active Substance: DULOXETINE
     Indication: NEUROPATHY PERIPHERAL
     Dosage: 60 MG, 1 IN 1 D
     Route: 048
     Dates: start: 20180606
  17. FERROUS SULFATE. [Concomitant]
     Active Substance: FERROUS SULFATE
     Indication: ANAEMIA
     Dosage: 325 MG, 2 IN 1 D
     Route: 048
     Dates: start: 20180306
  18. CIPROFLOXACIN. [Concomitant]
     Active Substance: CIPROFLOXACIN
     Indication: NEUTROPENIA
     Dosage: 500 MG, 2 IN 1 D
     Route: 048
     Dates: start: 20180918
  19. PALONOSETRON HYDROCHLORIDE. [Concomitant]
     Active Substance: PALONOSETRON HYDROCHLORIDE
     Indication: CHEMOTHERAPY
     Dosage: 0.25 MG, AS REQUIRED
     Route: 042
     Dates: start: 20180905
  20. ARANESP(DARBEPOETIN ALFA) [Concomitant]
     Indication: ANAEMIA
     Dosage: 200 MCG, AS REQUIRED
     Route: 058
     Dates: start: 20180905
  21. 5-FLUOROURACIL [FLUOROURACIL] [Suspect]
     Active Substance: FLUOROURACIL
     Dosage: 1920 MG/M2, 1 IN 2 WK
     Route: 042
     Dates: start: 20180926, end: 20180928
  22. VENTOLIN [Concomitant]
     Active Substance: ALBUTEROL SULFATE
     Indication: CHRONIC OBSTRUCTIVE PULMONARY DISEASE
     Dosage: UNK
     Route: 055
  23. DARBEPOETIN ALFA [Concomitant]
     Active Substance: DARBEPOETIN ALFA
     Indication: ANAEMIA
     Dosage: 200 MCG (200 MCG, 1 IN 1 D)
     Route: 058
     Dates: start: 20180725
  24. DEXAMETHASONE. [Concomitant]
     Active Substance: DEXAMETHASONE
     Indication: CHEMOTHERAPY
     Dosage: 10 MG, AS REQUIRED
     Route: 042
     Dates: start: 20180905
  25. BEVACIZUMAB. [Suspect]
     Active Substance: BEVACIZUMAB
     Dosage: DAY 1 OF EACH 14-DAY CYCLE (5 MG/KG, 1 IN 2 WK)
     Route: 042
     Dates: start: 20190109
  26. LOMOTIL [Concomitant]
     Active Substance: ATROPINE SULFATE\DIPHENOXYLATE HYDROCHLORIDE
     Indication: DIARRHOEA
     Dosage: 0.025 MG, AS REQURIED
     Route: 048
     Dates: start: 20180522
  27. FILGRASTIM [Concomitant]
     Active Substance: FILGRASTIM
     Indication: NEUTROPENIA
     Dosage: 480 MG, AS REQUIRED
     Route: 058
     Dates: start: 20180913
  28. 5-FLUOROURACIL [FLUOROURACIL] [Suspect]
     Active Substance: FLUOROURACIL
     Dosage: 2400 MG/M2, 1 IN 2 WK
     Route: 042
     Dates: start: 20180905, end: 20180907
  29. DARBEPOETIN ALFA [Concomitant]
     Active Substance: DARBEPOETIN ALFA
     Indication: ANAEMIA VITAMIN B12 DEFICIENCY
  30. LOMOTIL [Concomitant]
     Active Substance: ATROPINE SULFATE\DIPHENOXYLATE HYDROCHLORIDE
     Indication: DIARRHOEA
     Dosage: AS REQURIED
     Route: 048
     Dates: start: 20181129
  31. LOPERAMIDE HYDROCHLORIDE. [Concomitant]
     Active Substance: LOPERAMIDE HYDROCHLORIDE
     Indication: DIARRHOEA
     Dosage: 2 MG, AS REQUIRED
     Route: 048
     Dates: start: 20180118
  32. GAS X (SIMETICONE) [Concomitant]
     Indication: FLATULENCE
     Dosage: 125 MG, AS REQUIRED
     Route: 048
     Dates: start: 20181005
  33. IRINOTECAN HCL [Suspect]
     Active Substance: IRINOTECAN HYDROCHLORIDE
     Dosage: DAY 1 OF EACH 14-DAY CYCLE (100 MG/M2, 1 IN 2 WK)
     Route: 042
     Dates: start: 20190109
  34. LEUCOVORIN [FOLINIC ACID] [Suspect]
     Active Substance: LEUCOVORIN
     Indication: COLORECTAL CANCER METASTATIC
     Dosage: DAY 1 OF EACH 14-DAY CYCLE (400 MG/M2, 1 IN 2 WK)
     Route: 042
     Dates: start: 20180905, end: 20181219
  35. 5-FLUOROURACIL [FLUOROURACIL] [Suspect]
     Active Substance: FLUOROURACIL
     Dosage: 1600 MG/M2, 1 IN 2 WK
     Route: 042
     Dates: start: 20181017, end: 20191219
  36. ONDANSETRON [Concomitant]
     Active Substance: ONDANSETRON
     Indication: NAUSEA
     Dosage: 8 MG, AS REQUIRED
     Route: 048
     Dates: start: 20170907

REACTIONS (1)
  - Cellulitis [Recovered/Resolved]

NARRATIVE: CASE EVENT DATE: 20181226
